FAERS Safety Report 4431787-X (Version None)
Quarter: 2004Q3

REPORT INFORMATION
  Report Type: 
  Country: None (occurrence: None)
  Receive Date: 20040818
  Receipt Date: 20040806
  Transmission Date: 20050211
  Serious: Yes (Death, Life-Threatening)
  Sender: FDA-Public Use
  Company Number: A04200400726

PATIENT
  Age: 68 Year
  Sex: Female

DRUGS (3)
  1. HYDROXYCHLOROQUINE SULFATE [Suspect]
     Indication: POLYARTHRITIS
     Dosage: 100 MG QD, ORAL
     Route: 048
     Dates: start: 20020101
  2. METHOTREXATE SODIUM [Suspect]
     Indication: POLYARTHRITIS
     Dosage: 15 MG/1 WEEK ORAL A FEW YEARS
     Route: 048
  3. METFORMIN HCL [Concomitant]

REACTIONS (9)
  - ATRIOVENTRICULAR BLOCK COMPLETE [None]
  - C-REACTIVE PROTEIN INCREASED [None]
  - COAGULOPATHY [None]
  - HYPERTENSION [None]
  - HYPOGLYCAEMIA [None]
  - PANCYTOPENIA [None]
  - RENAL FAILURE [None]
  - SEPTIC SHOCK [None]
  - TOXIC EPIDERMAL NECROLYSIS [None]
